FAERS Safety Report 23722700 (Version 6)
Quarter: 2025Q1

REPORT INFORMATION
  Report Type: Spontaneous
  Country: US (occurrence: US)
  Receive Date: 20240409
  Receipt Date: 20250109
  Transmission Date: 20250408
  Serious: No
  Sender: PFIZER
  Company Number: US-PFIZER INC-PV202400045675

PATIENT
  Age: 44 Year
  Sex: Female

DRUGS (5)
  1. XELJANZ XR [Suspect]
     Active Substance: TOFACITINIB CITRATE
     Indication: Psoriatic arthropathy
     Dosage: 11 MG, DAILY
     Route: 048
     Dates: start: 202403
  2. METHOTREXATE [Concomitant]
     Active Substance: METHOTREXATE
     Indication: Psoriatic arthropathy
     Dosage: 25 MG, WEEKLY
     Route: 058
  3. CEVIMELINE [Concomitant]
     Active Substance: CEVIMELINE
     Indication: Sjogren^s syndrome
     Dosage: 30 MG, 2X/DAY
  4. NALTREXONE [Concomitant]
     Active Substance: NALTREXONE
     Indication: Fibromyalgia
     Dosage: 3 MG, DAILY
  5. PREDNISONE [Concomitant]
     Active Substance: PREDNISONE
     Indication: Psoriatic arthropathy

REACTIONS (6)
  - Blood cholesterol increased [Unknown]
  - Nausea [Unknown]
  - Blood pressure increased [Unknown]
  - Drug ineffective [Recovering/Resolving]
  - Product dose omission in error [Unknown]
  - Product dose omission issue [Unknown]
